FAERS Safety Report 6531134-3 (Version None)
Quarter: 2010Q1

REPORT INFORMATION
  Report Type: 
  Country: None (occurrence: None)
  Receive Date: 20100108
  Receipt Date: 20091230
  Transmission Date: 20100710
  Serious: Yes (Other)
  Sender: FDA-Public Use
  Company Number: US-AMGEN-KDL374881

PATIENT
  Sex: Female

DRUGS (14)
  1. PROCRIT [Suspect]
     Indication: DIALYSIS
     Route: 065
     Dates: start: 20090620
  2. VENOFER [Concomitant]
     Route: 042
  3. ZEMPLAR [Concomitant]
     Route: 042
  4. LISINOPRIL [Concomitant]
  5. HYDROXYZINE [Concomitant]
  6. CETIRIZINE [Concomitant]
  7. COLACE [Concomitant]
  8. NEPHRO-CAPS [Concomitant]
  9. SEVELAMER [Concomitant]
     Route: 048
  10. METOPROLOL [Concomitant]
  11. ALBUTEROL [Concomitant]
     Route: 055
  12. SPIRIVA [Concomitant]
     Route: 055
  13. FLEXERIL [Concomitant]
  14. TEMAZEPAM [Concomitant]

REACTIONS (6)
  - ANGINA PECTORIS [None]
  - ANXIETY [None]
  - DYSPNOEA [None]
  - HAEMOGLOBIN DECREASED [None]
  - RETICULOCYTE COUNT DECREASED [None]
  - VIRAL INFECTION [None]
